FAERS Safety Report 7650097-0 (Version None)
Quarter: 2011Q3

REPORT INFORMATION
  Report Type: 
  Country: None (occurrence: None)
  Receive Date: 20110802
  Receipt Date: 20110726
  Transmission Date: 20111222
  Serious: Yes (Other)
  Sender: FDA-Public Use
  Company Number: CA-SANOFI-AVENTIS-2011SA049092

PATIENT
  Age: 10 Year
  Sex: Female

DRUGS (2)
  1. LEUPROLIDE ACETATE [Suspect]
     Indication: PRECOCIOUS PUBERTY
     Route: 065
  2. LEUPROLIDE ACETATE [Suspect]
     Route: 065

REACTIONS (1)
  - EPIPHYSIOLYSIS [None]
